FAERS Safety Report 10478899 (Version 1)
Quarter: 2014Q3

REPORT INFORMATION
  Report Type: Spontaneous
  Country: CA (occurrence: CA)
  Receive Date: 20140926
  Receipt Date: 20140926
  Transmission Date: 20150326
  Serious: Yes (Other)
  Sender: FDA-Public Use
  Company Number: CA-TEVA-511834USA

PATIENT
  Age: 3 Year
  Sex: Male
  Weight: 16 kg

DRUGS (54)
  1. VINCRISTINE SULFATE INJECTION USP [Suspect]
     Active Substance: VINCRISTINE SULFATE
     Dosage: .1286 MILLIGRAM DAILY;
     Route: 042
  2. CHOLECALCIFEROL [Concomitant]
     Active Substance: CHOLECALCIFEROL
  3. DESIPRAMINE [Concomitant]
     Active Substance: DESIPRAMINE
  4. FLUCONAZOLE INJECTION [Concomitant]
     Dosage: SOLUTION INTRAVENOUS
  5. LANSOPRAZOLE. [Concomitant]
     Active Substance: LANSOPRAZOLE
     Dosage: CAPSULE, DELAYED RELEASE
  6. PENTAMIDINE ISETHIONATE [Concomitant]
     Active Substance: PENTAMIDINE ISETHIONATE
  7. TIMENTIN [Concomitant]
     Active Substance: CLAVULANATE POTASSIUM\TICARCILLIN DISODIUM
     Dosage: POWDER FOR SOLUTION INTRAVENOUS
  8. AMOXICILLIN/CLAVULANIC ACID [Concomitant]
     Active Substance: AMOXICILLIN\CLAVULANIC ACID
  9. AZITHROMYCIN [Concomitant]
     Active Substance: AZITHROMYCIN ANHYDROUS
  10. FUROSEMIDE. [Concomitant]
     Active Substance: FUROSEMIDE
  11. HYDROCORTISONE. [Concomitant]
     Active Substance: HYDROCORTISONE
  12. NYSTATIN. [Concomitant]
     Active Substance: NYSTATIN
  13. POTASSIUM [Concomitant]
     Active Substance: POTASSIUM
  14. TRIMETHOPRIM-SULFAMETHOXAZOLE [Concomitant]
     Active Substance: SULFAMETHOXAZOLE\TRIMETHOPRIM
  15. MERCAPTOPURINE. [Suspect]
     Active Substance: MERCAPTOPURINE
     Indication: PRODUCT USED FOR UNKNOWN INDICATION
     Dosage: CYCLICAL
     Route: 048
  16. DEXAMETHASONE. [Concomitant]
     Active Substance: DEXAMETHASONE
  17. DOXORUBICIN HYDROCHLORIDE INJECTION [Concomitant]
     Active Substance: DOXORUBICIN HYDROCHLORIDE
  18. FENTANYL CITRATE INJECTION 250 MCG/ 5 ML HOSPIRA [Concomitant]
     Active Substance: FENTANYL CITRATE
     Dosage: SOLUTION EPIDURAL
  19. FLUTICASONE [Concomitant]
     Active Substance: FLUTICASONE\FLUTICASONE PROPIONATE
     Dosage: SPRAY, METERED DOSE
  20. L-ASPARAGINASE [Concomitant]
     Active Substance: ASPARAGINASE
     Dosage: POWDER FOR SOLUTION INTRAMUSCULAR
  21. POLYETHYLENE GLYCOL [Concomitant]
     Active Substance: POLYETHYLENE GLYCOLS
  22. PYRIDOXINE [Concomitant]
     Active Substance: PYRIDOXINE
  23. RANITIDINE [Concomitant]
     Active Substance: RANITIDINE\RANITIDINE HYDROCHLORIDE
  24. METHOTREXATE [Suspect]
     Active Substance: METHOTREXATE
     Route: 042
  25. VINCRISTINE SULFATE INJECTION USP [Suspect]
     Active Substance: VINCRISTINE SULFATE
     Indication: PRODUCT USED FOR UNKNOWN INDICATION
     Dosage: .0571 MILLIGRAM DAILY;
     Route: 042
  26. METHOTREXATE [Concomitant]
     Active Substance: METHOTREXATE
  27. CEFOTAXIME [Concomitant]
     Active Substance: CEFOTAXIME\CEFOTAXIME SODIUM
  28. GABAPENTIN. [Concomitant]
     Active Substance: GABAPENTIN
  29. METOCLOPRAMIDE. [Concomitant]
     Active Substance: METOCLOPRAMIDE
  30. MORPHINE [Concomitant]
     Active Substance: MORPHINE
  31. NIFEDIPINE. [Concomitant]
     Active Substance: NIFEDIPINE
  32. SENNOSIDES [Concomitant]
     Active Substance: SENNOSIDES
  33. ZOLEDRONIC ACID [Concomitant]
     Active Substance: ZOLEDRONIC ACID
  34. ALLOPURINOL. [Concomitant]
     Active Substance: ALLOPURINOL
  35. AMITRIPTYLINE [Concomitant]
     Active Substance: AMITRIPTYLINE
  36. GRANISETRON [Concomitant]
     Active Substance: GRANISETRON
  37. LYRICA [Concomitant]
     Active Substance: PREGABALIN
  38. METHOTREXATE [Suspect]
     Active Substance: METHOTREXATE
     Dosage: 3.1429 MILLIGRAM DAILY;
     Route: 030
  39. HYDROMORPHONE [Concomitant]
     Active Substance: HYDROMORPHONE
  40. LEUCOVORIN [Concomitant]
     Active Substance: LEUCOVORIN
  41. METHYLPREDNISOLONE NOS [Concomitant]
     Active Substance: METHYLPREDNISOLONE OR METHYLPREDNISOLONE ACETATE
  42. ONDANSETRON [Concomitant]
     Active Substance: ONDANSETRON
  43. CALCITRIOL. [Concomitant]
     Active Substance: CALCITRIOL
  44. CALCIUM [Concomitant]
     Active Substance: CALCIUM
  45. CYTARABINE INJECTION [Concomitant]
     Active Substance: CYTARABINE
  46. DIMENHYDRINATE. [Concomitant]
     Active Substance: DIMENHYDRINATE
  47. METHOTRIMEPRAZINE [Concomitant]
     Active Substance: LEVOMEPROMAZINE
  48. ONCASPAR [Concomitant]
     Active Substance: PEGASPARGASE
  49. PREDNISONE. [Concomitant]
     Active Substance: PREDNISONE
  50. TOBRAMYCIN INJECTION USP [Concomitant]
  51. METHOTREXATE [Suspect]
     Active Substance: METHOTREXATE
     Indication: PRODUCT USED FOR UNKNOWN INDICATION
     Route: 042
  52. ACETAMINOPHEN. [Concomitant]
     Active Substance: ACETAMINOPHEN
  53. CLARITHROMYCIN. [Concomitant]
     Active Substance: CLARITHROMYCIN
  54. PIPERACILLIN/TAZOBACTAM [Concomitant]
     Active Substance: PIPERACILLIN SODIUM\TAZOBACTAM SODIUM

REACTIONS (3)
  - Aspartate aminotransferase increased [Unknown]
  - Drug-induced liver injury [Unknown]
  - Alanine aminotransferase increased [Unknown]
